FAERS Safety Report 7609309-1 (Version None)
Quarter: 2011Q3

REPORT INFORMATION
  Report Type: 
  Country: None (occurrence: None)
  Receive Date: 20110714
  Receipt Date: 20110702
  Transmission Date: 20111222
  Serious: Yes (Hospitalization)
  Sender: FDA-Public Use
  Company Number: PHHY2011TW59426

PATIENT
  Age: 76 Year
  Sex: Female

DRUGS (19)
  1. VIGABATRIN [Suspect]
     Dosage: 2000 MG, DAILY
     Route: 048
  2. MIDAZOLAM HCL [Concomitant]
     Dosage: 0.4 MG/KG, UNK
  3. LAMOTRIGINE [Concomitant]
     Dosage: UNK
  4. PHENYTOIN [Concomitant]
     Dosage: 300 MG, DAILY
     Route: 048
  5. PHENOBARBITAL TAB [Concomitant]
     Dosage: 100 MG EVERY 4 H
     Route: 030
  6. PHENOBARBITAL TAB [Concomitant]
     Dosage: 400 MG, DAILY
     Route: 030
  7. KETAMINE HCL [Concomitant]
     Dosage: 0.4 MG/KG/H
     Route: 042
  8. KETAMINE HCL [Concomitant]
     Dosage: 2000 MG, UNK
     Route: 042
  9. LORAZEPAM [Concomitant]
     Dosage: UNK
     Route: 042
  10. PHENYTOIN [Concomitant]
     Dosage: 20 MG/KG, UNK
     Route: 048
  11. PROPOFOL [Concomitant]
     Dosage: UNK
  12. TOPIRAMATE [Concomitant]
     Dosage: 200 MG, DAILY
     Route: 048
  13. TOPIRAMATE [Concomitant]
     Dosage: 300 MG, DAILY
     Route: 048
  14. KETAMINE HCL [Concomitant]
     Dosage: 2500 MG (ABOUT 50 MG/KG)
     Route: 042
  15. VALPROIC ACID [Concomitant]
     Dosage: 40 MG/KG, UNK
     Route: 042
  16. CARBAMAZEPINE [Suspect]
     Indication: COMPLEX PARTIAL SEIZURES
     Dosage: 600 MG, DAILY
     Route: 048
  17. LEVETIRACETAM [Concomitant]
     Dosage: 2000 MG, DAILY
     Route: 048
  18. KETAMINE HCL [Concomitant]
     Dosage: 1.5 MG/KG, UNK
     Route: 042
  19. KETAMINE HCL [Concomitant]
     Dosage: 0.05 MG/KG/H
     Route: 042

REACTIONS (18)
  - NOSOCOMIAL INFECTION [None]
  - ISCHAEMIC STROKE [None]
  - HYPOTENSION [None]
  - VASCULAR DEMENTIA [None]
  - HEPATIC ENZYME INCREASED [None]
  - URINARY TRACT INFECTION [None]
  - CEREBRAL ATROPHY [None]
  - MUSCLE TWITCHING [None]
  - DRUG INEFFECTIVE [None]
  - BRONCHOPNEUMONIA [None]
  - HEPATITIS ACUTE [None]
  - BOWEL MOVEMENT IRREGULARITY [None]
  - HAEMORRHAGIC STROKE [None]
  - STATUS EPILEPTICUS [None]
  - STUPOR [None]
  - SUBDURAL HAEMATOMA [None]
  - EPILEPSY [None]
  - RASH [None]
